FAERS Safety Report 8966146 (Version 1)
Quarter: 2012Q4

REPORT INFORMATION
  Report Type: Spontaneous
  Country: US (occurrence: None)
  Receive Date: 20121204
  Receipt Date: 20121204
  Transmission Date: 20130627
  Serious: Yes (Hospitalization)
  Sender: FDA-Public Use
  Company Number: ACO_33119_2012

PATIENT
  Age: 86 Year
  Sex: Female

DRUGS (11)
  1. AMPYRA (DALFAMPRIDINE) TABLET [Suspect]
     Dates: start: 20121011, end: 20121011
  2. VICODIN [Suspect]
  3. LOSARTAN (LOSARTAN POTASSIUM) [Concomitant]
  4. TIMOLOL (TIMOLOL) [Concomitant]
  5. WARFARIN (WARFARIN) [Concomitant]
  6. ZOLPIDEM (ZOLPIDEM TARTRATE) [Concomitant]
  7. CALCIUM (CALCIUM) [Concomitant]
  8. FUROSEMIDE (FUROSEMIDE SODIUM) [Concomitant]
  9. FISH OIL (FISH OIL) [Concomitant]
  10. LEVOTHYROXINE (LEVOTHYROXINE) [Concomitant]
  11. PRAMIPEXOLE (PRAMIPEXOLE) [Concomitant]

REACTIONS (8)
  - Respiratory distress [None]
  - Muscular weakness [None]
  - Movement disorder [None]
  - Pain in extremity [None]
  - Burning sensation [None]
  - Ear discomfort [None]
  - Drug hypersensitivity [None]
  - Asthenia [None]
